FAERS Safety Report 21188122 (Version 1)
Quarter: 2022Q3

REPORT INFORMATION
  Report Type: Spontaneous
  Country: FR (occurrence: FR)
  Receive Date: 20220809
  Receipt Date: 20220809
  Transmission Date: 20221027
  Serious: Yes (Other)
  Sender: FDA-Public Use
  Company Number: FR-AUROBINDO-AUR-APL-2022-030365

PATIENT
  Age: 21 Year
  Sex: Female

DRUGS (4)
  1. TRAMADOL [Suspect]
     Active Substance: TRAMADOL
     Dosage: NON PR?CIS?
     Route: 048
  2. COCAINE [Suspect]
     Active Substance: COCAINE
     Dosage: NON PR?CIS?
     Route: 065
  3. AMPHETAMINE [Suspect]
     Active Substance: AMPHETAMINE
     Dosage: NON PR?CIS?
     Route: 065
  4. CANNABIS SATIVA SUBSP. INDICA TOP [Suspect]
     Active Substance: CANNABIS SATIVA SUBSP. INDICA TOP
     Dosage: NON PR?CIS?
     Route: 065

REACTIONS (1)
  - Substance abuser [Not Recovered/Not Resolved]
